FAERS Safety Report 9911547 (Version 2)
Quarter: 2014Q2

REPORT INFORMATION
  Report Type: Spontaneous
  Country: US (occurrence: US)
  Receive Date: 20140219
  Receipt Date: 20140509
  Transmission Date: 20141212
  Serious: Yes (Other)
  Sender: FDA-Public Use
  Company Number: PHEH2014US003195

PATIENT
  Sex: Male

DRUGS (7)
  1. DIOVAN [Suspect]
     Dosage: 40 MG, BID
  2. METOPROLOL [Concomitant]
     Dosage: 25 MG, UNK
  3. LEVOTHYROXINE [Concomitant]
     Dosage: 50 MG, UNK
  4. WARFARIN [Concomitant]
     Dosage: 5 MG, UNK
  5. ASPIRIN [Concomitant]
     Dosage: 81 MG, UNK
  6. OMEPRAZOLE [Concomitant]
     Dosage: UNK UKN, UNK
  7. IRON [Concomitant]
     Dosage: 325 MG, UNK

REACTIONS (2)
  - Myocardial infarction [Unknown]
  - Cardiac disorder [Unknown]
